FAERS Safety Report 19440395 (Version 1)
Quarter: 2021Q2

REPORT INFORMATION
  Report Type: Spontaneous
  Country: US (occurrence: US)
  Receive Date: 20210621
  Receipt Date: 20210621
  Transmission Date: 20210717
  Serious: No
  Sender: FDA-Public Use
  Company Number: US-AUROBINDO-AUR-APL-2020-057576

PATIENT
  Sex: Female

DRUGS (1)
  1. QUINAPRIL TABLETS USP 10 MG [Suspect]
     Active Substance: QUINAPRIL
     Indication: PRODUCT USED FOR UNKNOWN INDICATION
     Dosage: 10 MILLIGRAM, DAILY
     Route: 065
     Dates: start: 202001, end: 202004

REACTIONS (2)
  - Somnolence [Unknown]
  - Fatigue [Unknown]
